FAERS Safety Report 25340218 (Version 1)
Quarter: 2025Q2

REPORT INFORMATION
  Report Type: Spontaneous
  Country: US (occurrence: None)
  Receive Date: 20250521
  Receipt Date: 20250521
  Transmission Date: 20250717
  Serious: No
  Sender: SUPERNUS PHARMACEUTICALS, INC.
  Company Number: US-SUPERNUS Pharmaceuticals, Inc.-SUP202404-001211

PATIENT
  Age: 7 Year
  Sex: Male
  Weight: 22.67 kg

DRUGS (2)
  1. QELBREE [Suspect]
     Active Substance: VILOXAZINE HYDROCHLORIDE
     Indication: Attention deficit hyperactivity disorder
     Dates: start: 20240310
  2. QELBREE [Suspect]
     Active Substance: VILOXAZINE HYDROCHLORIDE
     Dates: start: 202403

REACTIONS (1)
  - Drug ineffective [Unknown]
